FAERS Safety Report 7917684-3 (Version None)
Quarter: 2011Q4

REPORT INFORMATION
  Report Type: 
  Country: None (occurrence: None)
  Receive Date: 20111116
  Receipt Date: 20111108
  Transmission Date: 20120403
  Serious: Yes (Other)
  Sender: FDA-Public Use
  Company Number: US-JNJFOC-20111104085

PATIENT
  Sex: Male
  Weight: 68.04 kg

DRUGS (4)
  1. ZYTIGA [Suspect]
     Route: 048
     Dates: start: 20110801, end: 20110901
  2. METOPROLOL SUCCINATE [Concomitant]
     Indication: BLOOD PRESSURE
     Route: 048
     Dates: start: 20100101
  3. ZYTIGA [Suspect]
     Route: 048
     Dates: start: 20111001
  4. ZYTIGA [Suspect]
     Indication: PROSTATE CANCER METASTATIC
     Route: 048
     Dates: start: 20110601, end: 20110801

REACTIONS (13)
  - PALPITATIONS [None]
  - LYMPHOEDEMA [None]
  - HYPOTENSION [None]
  - BONE NEOPLASM MALIGNANT [None]
  - BONE PAIN [None]
  - ASTHENIA [None]
  - MOVEMENT DISORDER [None]
  - ARTHRALGIA [None]
  - HAEMOGLOBIN DECREASED [None]
  - GAIT DISTURBANCE [None]
  - DEAFNESS [None]
  - PAIN [None]
  - PROSTATIC SPECIFIC ANTIGEN INCREASED [None]
